FAERS Safety Report 23918320 (Version 1)
Quarter: 2024Q2

REPORT INFORMATION
  Report Type: Spontaneous
  Country: CN (occurrence: CN)
  Receive Date: 20240530
  Receipt Date: 20240530
  Transmission Date: 20240716
  Serious: Yes (Hospitalization)
  Sender: FDA-Public Use
  Company Number: CN-HALEON-2178534

PATIENT
  Age: 62 Year
  Sex: Male

DRUGS (2)
  1. IBUPROFEN [Suspect]
     Active Substance: IBUPROFEN
     Indication: Pyrexia
     Route: 048
     Dates: start: 20240518, end: 20240519
  2. CEFTRIAXONE [Suspect]
     Active Substance: CEFTRIAXONE\CEFTRIAXONE SODIUM
     Indication: Infection

REACTIONS (3)
  - Upper gastrointestinal haemorrhage [Unknown]
  - Faeces discoloured [Unknown]
  - Chronic gastritis [Unknown]

NARRATIVE: CASE EVENT DATE: 20240519
